FAERS Safety Report 13833101 (Version 2)
Quarter: 2017Q3

REPORT INFORMATION
  Report Type: Spontaneous
  Country: US (occurrence: US)
  Receive Date: 20170804
  Receipt Date: 20170808
  Transmission Date: 20171127
  Serious: No
  Sender: FDA-Public Use
  Company Number: US-PFIZER INC-2017335904

PATIENT
  Sex: Female

DRUGS (1)
  1. GABAPENTIN. [Suspect]
     Active Substance: GABAPENTIN
     Indication: SPINAL COLUMN STENOSIS
     Dosage: 300 MG, 1X/DAY (300 MG AT BEDTIME)

REACTIONS (3)
  - Drug ineffective for unapproved indication [Unknown]
  - Somnolence [Unknown]
  - Impaired driving ability [Unknown]
